FAERS Safety Report 10913674 (Version 1)
Quarter: 2015Q1

REPORT INFORMATION
  Report Type: Spontaneous
  Country: US (occurrence: None)
  Receive Date: 20150311
  Receipt Date: 20150311
  Transmission Date: 20150721
  Serious: Yes (Disabling)
  Sender: FDA-Public Use
  Company Number: None

PATIENT
  Age: 48 Year
  Sex: Female
  Weight: 62.6 kg

DRUGS (5)
  1. LITHIUM CARBONATE. [Concomitant]
     Active Substance: LITHIUM CARBONATE
  2. SYNTHROID [Concomitant]
     Active Substance: LEVOTHYROXINE SODIUM
  3. MULTIVITAMIN NEW CHAPTER TINY TABS [Concomitant]
  4. OLANZAPINE 20 MG ELI LILLY [Suspect]
     Active Substance: OLANZAPINE
     Indication: HYPOMANIA
     Dosage: 2 PILLS ONCE DAILY
     Route: 048
     Dates: start: 20140310, end: 20140831
  5. LAMICTAL [Concomitant]
     Active Substance: LAMOTRIGINE

REACTIONS (15)
  - Nausea [None]
  - Suicidal ideation [None]
  - Temperature intolerance [None]
  - Depression [None]
  - Sedation [None]
  - Menopause [None]
  - Temperature regulation disorder [None]
  - Product packaging issue [None]
  - Anxiety [None]
  - Apathy [None]
  - Muscle spasms [None]
  - Withdrawal syndrome [None]
  - Micturition urgency [None]
  - Hyperventilation [None]
  - Insomnia [None]
